FAERS Safety Report 15105902 (Version 2)
Quarter: 2018Q3

REPORT INFORMATION
  Report Type: Report from Study
  Country: US (occurrence: US)
  Receive Date: 20180704
  Receipt Date: 20180706
  Transmission Date: 20181010
  Serious: No
  Sender: FDA-Public Use
  Company Number: US-AMGEN-USASL2018089422

PATIENT
  Age: 54 Year
  Sex: Male

DRUGS (1)
  1. ENBREL [Suspect]
     Active Substance: ETANERCEPT
     Indication: RHEUMATOID ARTHRITIS
     Dosage: 50 MG, QWK
     Route: 065

REACTIONS (7)
  - Erythema [Unknown]
  - Ear infection [Unknown]
  - Joint warmth [Unknown]
  - Tinnitus [Unknown]
  - Pharyngitis [Unknown]
  - Diarrhoea [Unknown]
  - Feeling hot [Unknown]

NARRATIVE: CASE EVENT DATE: 20180620
